FAERS Safety Report 8119542-0 (Version None)
Quarter: 2012Q1

REPORT INFORMATION
  Report Type: 
  Country: None (occurrence: None)
  Receive Date: 20120207
  Receipt Date: 20120130
  Transmission Date: 20120608
  Serious: Yes (Hospitalization, Disabling)
  Sender: FDA-Public Use
  Company Number: PHHY2012NL008267

PATIENT
  Sex: Male

DRUGS (8)
  1. ZOMETA [Suspect]
     Dosage: 4 MG/100 ML, PER 28 DAYS
     Route: 042
     Dates: start: 20120130
  2. PHYSIOTHERAPY [Concomitant]
     Dosage: UNK
  3. ZOMETA [Suspect]
     Indication: PROSTATE CANCER METASTATIC
     Dosage: 4 MG/100 ML, PER 28 DAYS
     Route: 042
     Dates: start: 20101103
  4. MICARDIS [Concomitant]
     Dosage: 40MG 1X1
  5. DEXAMETHASONE [Concomitant]
     Dosage: 2 MG 2X2
  6. ZOMETA [Suspect]
     Dosage: 4 MG/100 ML, PER 28 DAYS
     Route: 042
     Dates: start: 20120102
  7. METOPROLOL [Concomitant]
     Dosage: 100 MG, 1X1
  8. PAMORELIN [Concomitant]
     Dosage: 22.5 MG, 22.5MG ONCE PER 6 MONTHS

REACTIONS (7)
  - MOBILITY DECREASED [None]
  - METASTASES TO BONE [None]
  - NEOPLASM MALIGNANT [None]
  - METASTASES TO SPINE [None]
  - PAIN [None]
  - NEOPLASM PROGRESSION [None]
  - WEIGHT DECREASED [None]
